FAERS Safety Report 8016923-0 (Version None)
Quarter: 2012Q1

REPORT INFORMATION
  Report Type: 
  Country: None (occurrence: None)
  Receive Date: 20120102
  Receipt Date: 20111223
  Transmission Date: 20120608
  Serious: Yes (Other)
  Sender: FDA-Public Use
  Company Number: PHEH2011US012469

PATIENT
  Sex: Female

DRUGS (5)
  1. LOPRESSOR [Suspect]
     Dosage: 25 MG, QD
  2. NEXIUM [Concomitant]
     Dosage: 40 MG, QD
  3. ACIPHEX [Concomitant]
     Dosage: 30 MG, QD
  4. TEKTURNA [Suspect]
     Indication: HYPERTENSION
     Dosage: 300 MG, UNK
     Dates: start: 20070101
  5. TEKTURNA [Suspect]
     Dosage: 150 MG, UNK
     Dates: start: 20100101

REACTIONS (13)
  - CEREBROVASCULAR ACCIDENT [None]
  - CHEST CRUSHING [None]
  - ABDOMINAL DISCOMFORT [None]
  - WEIGHT DECREASED [None]
  - APHAGIA [None]
  - NECK PAIN [None]
  - MYOCARDIAL INFARCTION [None]
  - BLOOD PRESSURE INCREASED [None]
  - MUSCULOSKELETAL PAIN [None]
  - CHEST DISCOMFORT [None]
  - HEADACHE [None]
  - FEELING ABNORMAL [None]
  - HEART RATE DECREASED [None]
